FAERS Safety Report 8568998-8 (Version None)
Quarter: 2012Q3

REPORT INFORMATION
  Report Type: 
  Country: None (occurrence: None)
  Receive Date: 20120803
  Receipt Date: 20120406
  Transmission Date: 20120928
  Serious: No
  Sender: FDA-Public Use
  Company Number: US-ABBOTT-12P-163-0923645-00

PATIENT
  Sex: Female
  Weight: 62.652 kg

DRUGS (13)
  1. JANUVIA [Concomitant]
     Indication: DIABETES MELLITUS
  2. NIASPAN [Suspect]
     Indication: HIGH DENSITY LIPOPROTEIN DECREASED
     Route: 048
     Dates: start: 20120202
  3. GLIPIZIDE [Concomitant]
     Indication: DIABETES MELLITUS
  4. METOPROLOL TARTRATE [Concomitant]
     Indication: HYPERTENSION
  5. METFORMIN HYDROCHLORIDE [Concomitant]
     Indication: DIABETES MELLITUS
  6. ATELVIA [Concomitant]
     Indication: OSTEOPENIA
  7. VITAMIN D [Concomitant]
     Indication: PRODUCT USED FOR UNKNOWN INDICATION
  8. ASPIRIN [Concomitant]
     Indication: PRODUCT USED FOR UNKNOWN INDICATION
  9. ALLEGRA [Concomitant]
     Indication: PRODUCT USED FOR UNKNOWN INDICATION
  10. GABAPENTIN [Concomitant]
     Indication: PRODUCT USED FOR UNKNOWN INDICATION
  11. SIMVASTATIN [Concomitant]
     Indication: PRODUCT USED FOR UNKNOWN INDICATION
     Dosage: AT BEDTIME
  12. ALLEGRA [Concomitant]
     Indication: DIZZINESS
  13. AMLODIPINE [Concomitant]
     Indication: HYPERTENSION

REACTIONS (2)
  - FEELING HOT [None]
  - PARAESTHESIA [None]
